FAERS Safety Report 25028772 (Version 1)
Quarter: 2025Q1

REPORT INFORMATION
  Report Type: Spontaneous
  Country: SE (occurrence: SE)
  Receive Date: 20250302
  Receipt Date: 20250302
  Transmission Date: 20250409
  Serious: No
  Sender: ROCHE
  Company Number: None

PATIENT
  Age: 33 Year
  Sex: Female
  Weight: 71 kg

DRUGS (3)
  1. TAMIFLU [Suspect]
     Active Substance: OSELTAMIVIR PHOSPHATE
     Indication: Influenza
     Dosage: 1X2
     Route: 065
     Dates: start: 20250125, end: 20250126
  2. ONDANSETRON [Concomitant]
     Active Substance: ONDANSETRON
  3. GLUKOS BRAUN MED NA + K [Concomitant]

REACTIONS (2)
  - Maternal exposure during pregnancy [Unknown]
  - Hepatic enzyme increased [Recovering/Resolving]

NARRATIVE: CASE EVENT DATE: 20250126
